FAERS Safety Report 21168007 (Version 8)
Quarter: 2022Q4

REPORT INFORMATION
  Report Type: Spontaneous
  Country: AR (occurrence: AR)
  Receive Date: 20220803
  Receipt Date: 20221024
  Transmission Date: 20230113
  Serious: Yes (Hospitalization, Other)
  Sender: FDA-Public Use
  Company Number: AR-SA-SAC20220729000739

PATIENT

DRUGS (3)
  1. LARONIDASE [Suspect]
     Active Substance: LARONIDASE
     Indication: Mucopolysaccharidosis I
     Dosage: 3 DF, QOW
     Route: 041
     Dates: start: 20220516, end: 2022
  2. LARONIDASE [Suspect]
     Active Substance: LARONIDASE
     Dosage: 0.58 MG/KG, QW
     Route: 041
     Dates: start: 20220526, end: 2022
  3. LARONIDASE [Suspect]
     Active Substance: LARONIDASE
     Dosage: 3 DF, QW
     Route: 041
     Dates: start: 2022

REACTIONS (9)
  - Sepsis [Recovering/Resolving]
  - Pyrexia [Recovering/Resolving]
  - Vascular device infection [Not Recovered/Not Resolved]
  - Poor venous access [Recovered/Resolved]
  - Pyrexia [Not Recovered/Not Resolved]
  - Pain in extremity [Not Recovered/Not Resolved]
  - Influenza [Recovering/Resolving]
  - Pharyngeal erythema [Recovering/Resolving]
  - Inappropriate schedule of product administration [Unknown]

NARRATIVE: CASE EVENT DATE: 20220101
